FAERS Safety Report 8120186-5 (Version None)
Quarter: 2012Q1

REPORT INFORMATION
  Report Type: 
  Country: None (occurrence: None)
  Receive Date: 20120207
  Receipt Date: 20120130
  Transmission Date: 20120608
  Serious: Yes (Other)
  Sender: FDA-Public Use
  Company Number: US-BAYER-2011-042323

PATIENT
  Age: 29 Year
  Sex: Female
  Weight: 77.098 kg

DRUGS (10)
  1. YASMIN [Suspect]
     Indication: CONTRACEPTION
     Dosage: UNK
     Route: 048
     Dates: start: 20070723, end: 20071007
  2. LOVENOX [Concomitant]
  3. ANTI-COAGULANT THERAPY [Concomitant]
  4. MIDRIN [Concomitant]
     Dosage: UNK
     Dates: start: 20070723
  5. HEPARIN [Concomitant]
  6. COUMADIN [Concomitant]
  7. WARFARIN SODIUM [Concomitant]
  8. LORTAB [Concomitant]
  9. IBUPROFEN [Concomitant]
     Dosage: UNK
     Dates: start: 20070723
  10. EXCEDRIN (MIGRAINE) [Concomitant]

REACTIONS (9)
  - INJURY [None]
  - FIBRIN D DIMER INCREASED [None]
  - GENERAL PHYSICAL HEALTH DETERIORATION [None]
  - DEEP VEIN THROMBOSIS [None]
  - OEDEMA PERIPHERAL [None]
  - PAIN [None]
  - EMOTIONAL DISTRESS [None]
  - ANXIETY [None]
  - PAIN IN EXTREMITY [None]
